FAERS Safety Report 25462314 (Version 1)
Quarter: 2025Q2

REPORT INFORMATION
  Report Type: Spontaneous
  Country: GB (occurrence: GB)
  Receive Date: 20250620
  Receipt Date: 20250620
  Transmission Date: 20250717
  Serious: Yes (Other)
  Sender: ANI
  Company Number: GB-ANIPHARMA-2025-UK-000101

PATIENT
  Age: 57 Year
  Sex: Female

DRUGS (4)
  1. CANDESARTAN CILEXETIL [Suspect]
     Active Substance: CANDESARTAN CILEXETIL
     Indication: Hypertension
     Dates: start: 20250501, end: 20250601
  2. OMEPRAZOLE [Concomitant]
     Active Substance: OMEPRAZOLE
  3. CITALOPRAM [Concomitant]
     Active Substance: CITALOPRAM
  4. FLUTICASONE PROPIONATE\SALMETEROL XINAFOATE [Concomitant]
     Active Substance: FLUTICASONE PROPIONATE\SALMETEROL XINAFOATE

REACTIONS (4)
  - Myalgia [Recovered/Resolved]
  - Gastrooesophageal reflux disease [Unknown]
  - Headache [Unknown]
  - Night sweats [Unknown]

NARRATIVE: CASE EVENT DATE: 20250515
